FAERS Safety Report 8063957-6 (Version None)
Quarter: 2012Q1

REPORT INFORMATION
  Report Type: 
  Country: None (occurrence: None)
  Receive Date: 20120123
  Receipt Date: 20120116
  Transmission Date: 20120608
  Serious: Yes (Other)
  Sender: FDA-Public Use
  Company Number: PHEH2012US001416

PATIENT
  Sex: Female

DRUGS (7)
  1. ESTROGENS CONJUGATED [Suspect]
     Dosage: UNK UKN, TWICE A WEEK
     Route: 067
  2. PROGESTERONE [Suspect]
     Dosage: UNK UKN, ONCE A DAY
     Route: 061
  3. LISINOPRIL [Concomitant]
     Indication: BLOOD PRESSURE
     Dosage: UNK UKN, UNK
  4. RECLAST [Suspect]
     Dosage: UNK UKN, UNK
     Route: 042
     Dates: start: 20111024
  5. BENADRYL [Suspect]
     Indication: DIZZINESS
     Dosage: 25 MG, UNK
     Route: 048
  6. PRILOSEC [Concomitant]
     Indication: GASTROOESOPHAGEAL REFLUX DISEASE
     Dosage: UNK UKN, UNK
  7. EVISTA [Suspect]
     Dosage: 60 MG, QD
     Route: 048

REACTIONS (6)
  - DIZZINESS [None]
  - VOMITING [None]
  - BALANCE DISORDER [None]
  - MUSCULOSKELETAL CHEST PAIN [None]
  - MENIERE'S DISEASE [None]
  - CHILLS [None]
